FAERS Safety Report 12897522 (Version 1)
Quarter: 2016Q4

REPORT INFORMATION
  Report Type: Spontaneous
  Country: US (occurrence: US)
  Receive Date: 20161031
  Receipt Date: 20161031
  Transmission Date: 20170207
  Serious: No
  Sender: FDA-Public Use
  Company Number: US-ELI_LILLY_AND_COMPANY-US201610005202

PATIENT
  Age: 71 Year
  Sex: Male

DRUGS (1)
  1. AXIRON [Suspect]
     Active Substance: TESTOSTERONE
     Indication: MUSCLE TONE DISORDER
     Dosage: 60 MG, QD
     Route: 065
     Dates: start: 20161010

REACTIONS (2)
  - Product use issue [Unknown]
  - Application site irritation [Unknown]

NARRATIVE: CASE EVENT DATE: 20161010
